FAERS Safety Report 20490578 (Version 1)
Quarter: 2022Q1

REPORT INFORMATION
  Report Type: Report from Study
  Country: CL (occurrence: CL)
  Receive Date: 20220218
  Receipt Date: 20220218
  Transmission Date: 20220423
  Serious: Yes (Death, Other)
  Sender: FDA-Public Use
  Company Number: CL-002147023-NVSC2022CL027823

PATIENT

DRUGS (2)
  1. RUXOLITINIB [Suspect]
     Active Substance: RUXOLITINIB
     Indication: Myelofibrosis
     Dosage: 20 MG, Q12H
     Route: 048
     Dates: start: 20191207
  2. LEVOTHYROXINE [Concomitant]
     Active Substance: LEVOTHYROXINE
     Indication: Hypothyroidism
     Dosage: 75 MG, Q24H
     Route: 048
     Dates: start: 2015

REACTIONS (11)
  - Acute respiratory failure [Fatal]
  - General physical health deterioration [Unknown]
  - Pyrexia [Fatal]
  - Splenomegaly [Fatal]
  - Haematocrit decreased [Unknown]
  - Haemoglobin decreased [Unknown]
  - Platelet count decreased [Unknown]
  - White blood cell count increased [Unknown]
  - Weight decreased [Fatal]
  - Abdominal pain upper [Fatal]
  - Anaemia [Fatal]

NARRATIVE: CASE EVENT DATE: 20191207
